FAERS Safety Report 4476005-1 (Version None)
Quarter: 2004Q4

REPORT INFORMATION
  Report Type: 
  Country: None (occurrence: None)
  Receive Date: 20041012
  Receipt Date: 20040930
  Transmission Date: 20050328
  Serious: Yes (Other)
  Sender: FDA-Public Use
  Company Number: 2004071927

PATIENT
  Age: 76 Year
  Sex: Female
  Weight: 63.5036 kg

DRUGS (3)
  1. NASALCROM [Suspect]
     Indication: HYPERSENSITIVITY
     Dosage: 1 SPRAY EACH NOSTRIL 2-4X A
     Route: 045
     Dates: start: 20020101, end: 20040929
  2. LEVOTHYROXINE SODIUM [Concomitant]
  3. GLYBURIDE [Concomitant]

REACTIONS (3)
  - ABNORMAL SENSATION IN EYE [None]
  - PHOTOPHOBIA [None]
  - UNEXPECTED THERAPEUTIC DRUG EFFECT [None]
